FAERS Safety Report 20074330 (Version 3)
Quarter: 2022Q1

REPORT INFORMATION
  Report Type: Spontaneous
  Country: IR (occurrence: IR)
  Receive Date: 20211116
  Receipt Date: 20220309
  Transmission Date: 20220423
  Serious: Yes (Other)
  Sender: FDA-Public Use
  Company Number: IR-PFIZER INC-202101506952

PATIENT
  Age: 13 Year
  Sex: Male

DRUGS (12)
  1. METHYLPREDNISOLONE SODIUM SUCCINATE [Suspect]
     Active Substance: METHYLPREDNISOLONE SODIUM SUCCINATE
     Indication: COVID-19
     Dosage: 30 MG/KG (ONLY TWO DOSES WERE ADMINISTERED)
     Route: 042
     Dates: start: 2021
  2. REMDESIVIR [Suspect]
     Active Substance: REMDESIVIR
     Indication: COVID-19
     Dosage: UNK (ONLY TWO DOSES WERE ADMINISTERED)
     Dates: start: 2021
  3. VANCOMYCIN [Concomitant]
     Active Substance: VANCOMYCIN
     Indication: COVID-19
     Dosage: UNK
     Dates: start: 2021
  4. PIPERACILLIN [Concomitant]
     Active Substance: PIPERACILLIN
     Indication: COVID-19
     Dosage: UNK
     Dates: start: 2021
  5. TAZOBACTAM [Concomitant]
     Active Substance: TAZOBACTAM
     Indication: COVID-19
     Dosage: UNK
     Dates: start: 2021
  6. ASPIRIN [Concomitant]
     Active Substance: ASPIRIN
     Indication: COVID-19
     Dosage: UNK
     Dates: start: 2021
  7. FAMOTIDINE [Concomitant]
     Active Substance: FAMOTIDINE
     Indication: COVID-19
     Dosage: UNK
     Dates: start: 2021
  8. ZINC [Concomitant]
     Active Substance: ZINC
     Indication: COVID-19
     Dosage: UNK
     Dates: start: 2021
  9. ASCORBIC ACID [Concomitant]
     Active Substance: ASCORBIC ACID
     Indication: COVID-19
     Dosage: UNK
     Dates: start: 2021
  10. COLISTIN [Concomitant]
     Active Substance: COLISTIN
     Indication: COVID-19
     Dosage: UNK
     Dates: start: 2021
  11. TEICOPLANIN [Concomitant]
     Active Substance: TEICOPLANIN
     Indication: COVID-19
     Dosage: UNK
     Dates: start: 2021
  12. CASPOFUNGIN [Concomitant]
     Active Substance: CASPOFUNGIN
     Indication: COVID-19
     Dosage: UNK
     Dates: start: 2021

REACTIONS (5)
  - Bradycardia [Unknown]
  - Papilloedema [Unknown]
  - Idiopathic intracranial hypertension [Unknown]
  - Hypertension [Unknown]
  - Off label use [Unknown]

NARRATIVE: CASE EVENT DATE: 20210101
